FAERS Safety Report 6720255-8 (Version None)
Quarter: 2010Q2

REPORT INFORMATION
  Report Type: 
  Country: None (occurrence: None)
  Receive Date: 20100507
  Receipt Date: 20100420
  Transmission Date: 20101027
  Serious: Yes (Other)
  Sender: FDA-Public Use
  Company Number: B0647594A

PATIENT
  Age: 49 Year

DRUGS (2)
  1. AMOXICILLIN/CLAVULANATE POTASSIUM [Suspect]
     Indication: LUNG ABSCESS
     Dosage: INTRAVENOUS
     Route: 042
  2. LEVOFLOXACIN [Suspect]
     Indication: LUNG ABSCESS
     Dosage: ORAL
     Route: 048

REACTIONS (4)
  - ABDOMINAL PAIN [None]
  - ARTHRITIS [None]
  - LEUKOCYTOCLASTIC VASCULITIS [None]
  - PLATELET COUNT INCREASED [None]
